FAERS Safety Report 22099343 (Version 2)
Quarter: 2023Q2

REPORT INFORMATION
  Report Type: Spontaneous
  Country: US (occurrence: US)
  Receive Date: 20230315
  Receipt Date: 20230414
  Transmission Date: 20230722
  Serious: No
  Sender: FDA-Public Use
  Company Number: US-BAYER-2023A026566

PATIENT
  Age: 26 Year
  Sex: Female

DRUGS (3)
  1. DEVICE [Suspect]
     Active Substance: DEVICE
     Indication: Female sterilisation
     Dosage: UNK
     Dates: start: 2010
  2. MIRENA [Suspect]
     Active Substance: LEVONORGESTREL
     Indication: Dysmenorrhoea
     Dosage: 20?G/DAY
     Route: 015
  3. MIRENA [Suspect]
     Active Substance: LEVONORGESTREL
     Indication: Heavy menstrual bleeding

REACTIONS (6)
  - Dysmenorrhoea [Not Recovered/Not Resolved]
  - Presyncope [None]
  - Heavy menstrual bleeding [None]
  - Off label use of device [None]
  - Amenorrhoea [None]
  - Therapeutic product ineffective for unapproved indication [None]

NARRATIVE: CASE EVENT DATE: 20100101
